FAERS Safety Report 6052617-9 (Version None)
Quarter: 2009Q1

REPORT INFORMATION
  Report Type: 
  Country: None (occurrence: None)
  Receive Date: 20090127
  Receipt Date: 20090116
  Transmission Date: 20090719
  Serious: Yes (Death)
  Sender: FDA-Public Use
  Company Number: US-RANBAXY-2009RR-20878

PATIENT
  Age: 56 Year
  Sex: Female

DRUGS (5)
  1. HYDROCODONE BITARTRATE AND ACETAMINOPHEN [Suspect]
     Indication: SUICIDAL IDEATION
     Route: 048
  2. CYCLOBENZAPRINE HCL [Suspect]
     Indication: SUICIDAL IDEATION
     Route: 048
  3. LORAZEPAM [Suspect]
     Indication: SUICIDAL IDEATION
     Route: 048
  4. IBUPROFEN TABLETS [Suspect]
     Indication: SUICIDAL IDEATION
     Route: 048
  5. ESZOPICLONE [Suspect]
     Indication: SUICIDAL IDEATION
     Route: 048

REACTIONS (1)
  - COMPLETED SUICIDE [None]
